FAERS Safety Report 14498090 (Version 2)
Quarter: 2018Q1

REPORT INFORMATION
  Report Type: Report from Study
  Country: US (occurrence: US)
  Receive Date: 20180207
  Receipt Date: 20180323
  Transmission Date: 20180509
  Serious: Yes (Death, Hospitalization, Other)
  Sender: FDA-Public Use
  Company Number: US-BRISTOL-MYERS SQUIBB COMPANY-BMS-2018-005913

PATIENT
  Age: 24 Year
  Sex: Male
  Weight: 65.7 kg

DRUGS (3)
  1. CABOZANTINIB [Suspect]
     Active Substance: CABOZANTINIB
     Indication: GENITOURINARY TRACT NEOPLASM
     Dosage: 40 MG, QD
     Route: 048
     Dates: start: 20171030, end: 20171218
  2. IPILIMUMAB [Suspect]
     Active Substance: IPILIMUMAB
     Indication: GENITOURINARY TRACT NEOPLASM
     Dosage: 3 MG/KG, Q3WK
     Route: 042
     Dates: start: 20171030, end: 20171211
  3. NIVOLUMAB [Suspect]
     Active Substance: NIVOLUMAB
     Indication: GENITOURINARY TRACT NEOPLASM
     Dosage: 1 MG/KG, Q3WK
     Route: 042
     Dates: start: 20171030, end: 20171211

REACTIONS (5)
  - Malignant neoplasm progression [Fatal]
  - Pulmonary embolism [Unknown]
  - Superior vena cava syndrome [Unknown]
  - Pleural effusion [Unknown]
  - Pneumothorax [Unknown]

NARRATIVE: CASE EVENT DATE: 20171226
